FAERS Safety Report 9707108 (Version 1)
Quarter: 2013Q4

REPORT INFORMATION
  Report Type: Spontaneous
  Country: CH (occurrence: CH)
  Receive Date: 20131125
  Receipt Date: 20131125
  Transmission Date: 20140711
  Serious: Yes (Other)
  Sender: FDA-Public Use
  Company Number: CH-MYLANLABS-2013S1025625

PATIENT
  Age: 66 Year
  Sex: Female

DRUGS (8)
  1. METHYLNALTREXONE BROMIDE [Suspect]
     Indication: CONSTIPATION
     Dosage: 8MG
     Route: 058
  2. MORPHINE [Interacting]
     Indication: ABDOMINAL PAIN
     Route: 048
  3. ASPIRIN [Concomitant]
     Dosage: 100MG/DAY
     Route: 065
  4. OXAZEPAM [Concomitant]
     Route: 065
  5. FONDAPARINUX SODIUM [Concomitant]
     Dosage: 2.5MG/DAY
     Route: 058
  6. SODIUM PICOSULFATE [Concomitant]
     Route: 065
  7. IPRATROPIUM BROMIDE [Concomitant]
     Route: 055
  8. SALBUTAMOL [Concomitant]
     Route: 055

REACTIONS (2)
  - Vomiting [Recovered/Resolved]
  - Drug interaction [Recovered/Resolved]
